FAERS Safety Report 10758440 (Version 1)
Quarter: 2015Q1

REPORT INFORMATION
  Report Type: Spontaneous
  Country: US (occurrence: None)
  Receive Date: 20150202
  Receipt Date: 20150202
  Transmission Date: 20150721
  Serious: Yes (Other)
  Sender: FDA-Public Use
  Company Number: None

PATIENT
  Age: 14 Year
  Sex: Male
  Weight: 97 kg

DRUGS (11)
  1. VITAMIN K [Concomitant]
     Active Substance: PHYTONADIONE
  2. FENTANYL. [Concomitant]
     Active Substance: FENTANYL
  3. PROPOFOL. [Concomitant]
     Active Substance: PROPOFOL
  4. SEVOFLURANE. [Concomitant]
     Active Substance: SEVOFLURANE
  5. TRILEPTAL [Concomitant]
     Active Substance: OXCARBAZEPINE
  6. D5 NORMAL SALINE [Concomitant]
  7. MIDAZOLAM [Concomitant]
     Active Substance: MIDAZOLAM\MIDAZOLAM HYDROCHLORIDE
  8. ROCURONIUM [Concomitant]
     Active Substance: ROCURONIUM BROMIDE
  9. CEREBREX [Suspect]
     Active Substance: CALCIUM GLYCEROPHOSPHATE\CALCIUM PHOSPHATE\GLUTAMIC ACID\VITAMIN B
     Indication: CONVULSION PROPHYLAXIS
     Route: 042
     Dates: start: 20150131
  10. ONDANSETRON [Concomitant]
     Active Substance: ONDANSETRON
  11. SUCCINYLCHOLINE [Concomitant]
     Active Substance: SUCCINYLCHOLINE

REACTIONS (1)
  - Blood potassium increased [None]

NARRATIVE: CASE EVENT DATE: 20150131
